FAERS Safety Report 6175102-2 (Version None)
Quarter: 2009Q2

REPORT INFORMATION
  Report Type: 
  Country: None (occurrence: None)
  Receive Date: 20090430
  Receipt Date: 20090226
  Transmission Date: 20091009
  Serious: No
  Sender: FDA-Public Use
  Company Number: US-ASTRAZENECA-2009UW05360

PATIENT
  Age: 38 Year
  Sex: Male
  Weight: 63.5 kg

DRUGS (8)
  1. NEXIUM [Suspect]
     Indication: GASTROOESOPHAGEAL REFLUX DISEASE
     Route: 048
     Dates: start: 20000101
  2. FISH OIL [Concomitant]
  3. IRON SUPPLEMENTS [Concomitant]
  4. MULTIVITAMIN SUPPLEMENTS [Concomitant]
  5. SYNTHROID [Concomitant]
  6. DEPAKOTE [Concomitant]
  7. KLONOPIN [Concomitant]
  8. DILANTIN [Concomitant]

REACTIONS (1)
  - GLOBULIN ABNORMAL [None]
